FAERS Safety Report 9029471 (Version 3)
Quarter: 2013Q1

REPORT INFORMATION
  Report Type: Spontaneous
  Country: KR (occurrence: KR)
  Receive Date: 20130125
  Receipt Date: 20130225
  Transmission Date: 20140127
  Serious: Yes (Hospitalization)
  Sender: FDA-Public Use
  Company Number: KR-ELI_LILLY_AND_COMPANY-KR201301006099

PATIENT
  Age: 70 Year
  Sex: Male

DRUGS (2)
  1. HUMALOG 25% LISPRO, 75% NPL [Suspect]
     Indication: BLOOD GLUCOSE INCREASED
     Dosage: 36 U, EACH MORNING
     Route: 058
     Dates: start: 201108
  2. HUMALOG 25% LISPRO, 75% NPL [Suspect]
     Dosage: 12 U, EACH EVENING
     Route: 058
     Dates: start: 201108

REACTIONS (2)
  - Hyperglycaemia [Recovered/Resolved]
  - Pneumonia [Not Recovered/Not Resolved]
